FAERS Safety Report 4493047-0 (Version None)
Quarter: 2004Q4

REPORT INFORMATION
  Report Type: 
  Country: None (occurrence: None)
  Receive Date: 20041029
  Receipt Date: 20041016
  Transmission Date: 20050328
  Serious: Yes (Other)
  Sender: FDA-Public Use
  Company Number: 2004062834

PATIENT

DRUGS (3)
  1. NEURONTIN [Suspect]
     Indication: ILL-DEFINED DISORDER
  2. IBUPROFEN [Suspect]
     Indication: ILL-DEFINED DISORDER
  3. ACETAMINOPHEN [Concomitant]
     Indication: ILL-DEFINED DISORDER

REACTIONS (2)
  - ARTHROPATHY [None]
  - BACK DISORDER [None]
